FAERS Safety Report 13698562 (Version 1)
Quarter: 2017Q2

REPORT INFORMATION
  Report Type: Report from Study
  Country: JP (occurrence: JP)
  Receive Date: 20170628
  Receipt Date: 20170628
  Transmission Date: 20170830
  Serious: Yes (Other)
  Sender: FDA-Public Use
  Company Number: JP-MYLANLABS-2017M1038647

PATIENT

DRUGS (2)
  1. MESALAZINE [Suspect]
     Active Substance: MESALAMINE
     Indication: COLITIS ULCERATIVE
     Dosage: 1250 MG; INCREASED TO 2250 MG
     Route: 065
  2. MESALAZINE [Suspect]
     Active Substance: MESALAMINE
     Dosage: 2250 MG
     Route: 065

REACTIONS (3)
  - Kounis syndrome [Recovered/Resolved]
  - Colitis ulcerative [Recovered/Resolved]
  - Drug intolerance [Recovered/Resolved]
